FAERS Safety Report 19447515 (Version 1)
Quarter: 2021Q2

REPORT INFORMATION
  Report Type: Spontaneous
  Country: US (occurrence: US)
  Receive Date: 20210621
  Receipt Date: 20210621
  Transmission Date: 20210717
  Serious: Yes (Life-Threatening, Other)
  Sender: FDA-Public Use
  Company Number: None

PATIENT
  Age: 43 Year
  Sex: Female
  Weight: 81.9 kg

DRUGS (23)
  1. VITAMIN D3 [Concomitant]
     Active Substance: CHOLECALCIFEROL
  2. CLONAZEPAM. [Concomitant]
     Active Substance: CLONAZEPAM
  3. MULTIVITAMIN [Concomitant]
     Active Substance: VITAMINS
  4. MELATONIN [Concomitant]
     Active Substance: MELATONIN
  5. MAGNESIUM GLYCINATE [Concomitant]
     Active Substance: MAGNESIUM GLYCINATE
  6. ZYRTEC [Concomitant]
     Active Substance: CETIRIZINE HYDROCHLORIDE
  7. NP THYROID [Suspect]
     Active Substance: LEVOTHYROXINE\LIOTHYRONINE
     Indication: HYPOTHYROIDISM
     Dosage: ?          QUANTITY:1 TABLET(S);?
     Route: 048
  8. ARMOUR THYROID [Concomitant]
     Active Substance: THYROID, PORCINE
  9. PROPANOLOL ER [Concomitant]
  10. PROBIOTIC [Concomitant]
     Active Substance: PROBIOTICS NOS
  11. NAC [Concomitant]
  12. DIGESTIVE ENZYMES/ZYGLUTEN [Concomitant]
  13. ATRANTIL [Concomitant]
  14. BERBERINE [Concomitant]
     Active Substance: BERBERINE
  15. EVENING PRIMROSE [Concomitant]
  16. IP?6 + INOSITOL [Concomitant]
  17. SPIRONOLACTONE. [Concomitant]
     Active Substance: SPIRONOLACTONE
  18. ALPRAZOLAM. [Concomitant]
     Active Substance: ALPRAZOLAM
  19. PRO?AIR HFA INHALER [Concomitant]
  20. PROGESTERONE. [Concomitant]
     Active Substance: PROGESTERONE
  21. BETAINE HCL [Concomitant]
  22. MILK THISTLE [Concomitant]
     Active Substance: DIETARY SUPPLEMENT\HERBALS\MILK THISTLE
  23. L?THEANINE [Concomitant]
     Active Substance: DIETARY SUPPLEMENT

REACTIONS (12)
  - Tremor [None]
  - Hyperhidrosis [None]
  - Dizziness [None]
  - Thyrotoxic crisis [None]
  - Product measured potency issue [None]
  - Product substitution issue [None]
  - Therapy interrupted [None]
  - Heart rate increased [None]
  - Cataract [None]
  - Product quality issue [None]
  - Memory impairment [None]
  - Hypertension [None]

NARRATIVE: CASE EVENT DATE: 20200611
